FAERS Safety Report 6479329 (Version 4)
Quarter: 2018Q4

REPORT INFORMATION
  Report Type: Spontaneous
  Country: JP (occurrence: JP)
  Receive Date: 20071203
  Receipt Date: 20181102
  Transmission Date: 20190205
  Serious: Yes (Death, Other)
  Sender: FDA-Public Use
  Company Number: PHBS2007JP20097

PATIENT
  Age: 50 Year
  Sex: Female

DRUGS (2)
  1. GLIVEC [Suspect]
     Active Substance: IMATINIB MESYLATE
     Dosage: 200 MG, QD
     Route: 048
     Dates: start: 200205, end: 200701
  2. GLIVEC [Suspect]
     Active Substance: IMATINIB MESYLATE
     Indication: GASTROINTESTINAL STROMAL TUMOUR
     Dosage: 400 MG, QD
     Route: 048
     Dates: start: 200205, end: 200205

REACTIONS (7)
  - Small intestine operation [Fatal]
  - Colectomy [Fatal]
  - White blood cell count decreased [Unknown]
  - Surgery [Fatal]
  - Chromosome analysis abnormal [Fatal]
  - Haemorrhage [Fatal]
  - Malignant neoplasm progression [Fatal]

NARRATIVE: CASE EVENT DATE: 200205
